FAERS Safety Report 19837228 (Version 3)
Quarter: 2024Q2

REPORT INFORMATION
  Report Type: Report from Study
  Country: DE (occurrence: DE)
  Receive Date: 20210916
  Receipt Date: 20240402
  Transmission Date: 20240716
  Serious: Yes (Hospitalization, Other)
  Sender: FDA-Public Use
  Company Number: DE-TEVA-2021-DE-1953912

PATIENT
  Age: 73 Year
  Sex: Female
  Weight: 74 kg

DRUGS (3)
  1. AJOVY [Suspect]
     Active Substance: FREMANEZUMAB-VFRM
     Indication: Migraine prophylaxis
     Dosage: DOSAGE TEXT: 225MG ONCE MONTHLY
     Route: 058
     Dates: start: 20200302, end: 20200409
  2. AJOVY [Suspect]
     Active Substance: FREMANEZUMAB-VFRM
     Dosage: DOSAGE TEXT: 225MG ONCE MONTHLY
     Route: 058
     Dates: start: 20200512, end: 20210217
  3. AJOVY [Suspect]
     Active Substance: FREMANEZUMAB-VFRM
     Dosage: DOSAGE TEXT: 675MG EVERY 3 MONTHS,  LAST DOSE BEFORE AE ONSET: 17-MAR-2021
     Route: 058
     Dates: start: 20210317, end: 20210317

REACTIONS (1)
  - Spinal subarachnoid haemorrhage [Recovered/Resolved]

NARRATIVE: CASE EVENT DATE: 20210515
